FAERS Safety Report 16265022 (Version 2)
Quarter: 2019Q2

REPORT INFORMATION
  Report Type: Report from Study
  Country: FR (occurrence: FR)
  Receive Date: 20190502
  Receipt Date: 20190516
  Transmission Date: 20190711
  Serious: Yes (Death, Other)
  Sender: FDA-Public Use
  Company Number: PHHY2018FR103506

PATIENT
  Sex: Female
  Weight: 78 kg

DRUGS (2)
  1. VOTRIENT [Suspect]
     Active Substance: PAZOPANIB HYDROCHLORIDE
     Indication: RENAL CANCER METASTATIC
     Dosage: 600 MG, QD
     Route: 048
     Dates: start: 20180820, end: 20190301
  2. VOTRIENT [Suspect]
     Active Substance: PAZOPANIB HYDROCHLORIDE
     Dosage: 600 MG, QD
     Route: 048
     Dates: start: 20180823, end: 20190301

REACTIONS (10)
  - Hypothyroidism [Not Recovered/Not Resolved]
  - Proteinuria [Recovering/Resolving]
  - Diarrhoea [Not Recovered/Not Resolved]
  - Renal cancer metastatic [Fatal]
  - Achromotrichia acquired [Not Recovered/Not Resolved]
  - Gamma-glutamyltransferase abnormal [Recovering/Resolving]
  - Hypertension [Recovered/Resolved]
  - Dysgeusia [Recovered/Resolved]
  - Malignant neoplasm progression [Fatal]
  - Asthenia [Not Recovered/Not Resolved]

NARRATIVE: CASE EVENT DATE: 20180827
